FAERS Safety Report 13242309 (Version 2)
Quarter: 2017Q1

REPORT INFORMATION
  Report Type: Report from Study
  Country: NL (occurrence: NL)
  Receive Date: 20170217
  Receipt Date: 20170224
  Transmission Date: 20170428
  Serious: Yes (Other)
  Sender: FDA-Public Use
  Company Number: NL-AMGEN-NLDSL2017022893

PATIENT
  Age: 54 Year
  Sex: Female

DRUGS (19)
  1. XGEVA [Suspect]
     Active Substance: DENOSUMAB
     Dosage: UNK
     Route: 058
     Dates: start: 20170120
  2. OXYCODON HCL SANDOZ [Concomitant]
     Dosage: 40 MG, BID
     Dates: start: 20161220
  3. FOLIUMZUUR [Concomitant]
     Active Substance: FOLIC ACID
     Dosage: 0.5 MG, QD
     Dates: start: 20161220
  4. DEXAMETHASONE. [Concomitant]
     Active Substance: DEXAMETHASONE
     Dosage: 4 MG, UNK
     Dates: start: 20170203
  5. RIBOCICLIB [Concomitant]
     Active Substance: RIBOCICLIB
     Indication: BREAST CANCER METASTATIC
     Dosage: UNK
  6. XGEVA [Suspect]
     Active Substance: DENOSUMAB
     Dosage: UNK
     Route: 058
     Dates: start: 20161221
  7. HYDROCHLOROTHIAZIDE. [Concomitant]
     Active Substance: HYDROCHLOROTHIAZIDE
     Dosage: 12.5 MG, QD
     Dates: start: 20161220
  8. ESOMEPRAZOLE [Concomitant]
     Active Substance: ESOMEPRAZOLE
     Dosage: 40 MG, QD
     Dates: start: 20161220
  9. MACROGOL [Concomitant]
     Active Substance: POLYETHYLENE GLYCOLS
     Dosage: UNK
     Dates: start: 20160208
  10. PARACETAMOL [Concomitant]
     Active Substance: ACETAMINOPHEN
     Dosage: 500 MG, QID
     Dates: start: 20160211
  11. ANTAGEL [Concomitant]
     Dosage: UNK
     Dates: start: 20160808
  12. CALCIUM CARBONATE W/COLECALCIFEROL [Concomitant]
     Active Substance: CALCIUM CARBONATE\CHOLECALCIFEROL
     Dosage: 500 MG, QD
     Dates: start: 20160212
  13. CALCIUM + VITAMIN D3 [Concomitant]
     Active Substance: CALCIUM CARBONATE\CHOLECALCIFEROL
     Dosage: UNK
     Dates: start: 20170130
  14. METOCLOPRAMIDE. [Concomitant]
     Active Substance: METOCLOPRAMIDE
     Dosage: UNK
     Dates: start: 20170203
  15. SENNOSIDE A+B [Concomitant]
     Active Substance: SENNOSIDES A AND B
     Dosage: 2 MG/ML, QD
     Dates: start: 20150807
  16. XGEVA [Suspect]
     Active Substance: DENOSUMAB
     Indication: PRODUCT USED FOR UNKNOWN INDICATION
     Dosage: 120 MG, Q4WK
     Route: 058
     Dates: start: 20150708
  17. CITALOPRAM [Concomitant]
     Active Substance: CITALOPRAM HYDROBROMIDE
     Dosage: 20 MG, UNK
     Dates: start: 20161220
  18. PREGABALIN SANDOZ [Concomitant]
     Dosage: 150 MG, BID
     Dates: start: 20161123
  19. DOCETAXEL. [Concomitant]
     Active Substance: DOCETAXEL
     Dosage: 20 MG/ML, QD
     Dates: start: 20170203

REACTIONS (12)
  - Breast cancer metastatic [Unknown]
  - Pain [Recovered/Resolved]
  - Transitional cell carcinoma [Unknown]
  - Poisoning [Unknown]
  - Gait disturbance [Unknown]
  - Delirium [Unknown]
  - Renal impairment [Unknown]
  - Metastases to spine [Unknown]
  - Tremor [Recovered/Resolved]
  - Ill-defined disorder [Unknown]
  - Pneumonia [Unknown]
  - Metastases to liver [Unknown]

NARRATIVE: CASE EVENT DATE: 20150725
